FAERS Safety Report 6085302-8 (Version None)
Quarter: 2009Q1

REPORT INFORMATION
  Report Type: 
  Country: None (occurrence: None)
  Receive Date: 20090218
  Receipt Date: 20090204
  Transmission Date: 20090719
  Serious: Yes (Disabling)
  Sender: FDA-Public Use
  Company Number: 2009PV000004

PATIENT
  Age: 50 Year
  Sex: Female

DRUGS (7)
  1. DEPOCYT [Suspect]
     Indication: CENTRAL NERVOUS SYSTEM LEUKAEMIA
     Dosage: 50 MG;QOW;INTH
     Route: 037
     Dates: start: 20080818, end: 20081106
  2. DASATINIB [Concomitant]
  3. BETAMETHASONE [Concomitant]
  4. TRAMADOL HCL [Concomitant]
  5. METHOTREXATE [Concomitant]
  6. PARACETAMOL [Concomitant]
  7. ESTRADIOL W/MEDROXYPROGESTERONE [Concomitant]

REACTIONS (6)
  - DYSSTASIA [None]
  - FALL [None]
  - HYPOAESTHESIA [None]
  - LEUKAEMIA RECURRENT [None]
  - MUSCULAR WEAKNESS [None]
  - PAIN [None]
